FAERS Safety Report 5913281-X (Version None)
Quarter: 2008Q4

REPORT INFORMATION
  Report Type: 
  Country: None (occurrence: None)
  Receive Date: 20081008
  Receipt Date: 20081008
  Transmission Date: 20090506
  Serious: Yes (Other)
  Sender: FDA-Public Use
  Company Number: None

PATIENT
  Age: 32 Year
  Sex: Female
  Weight: 83.9154 kg

DRUGS (1)
  1. ZYPREXA [Suspect]
     Dosage: 50 MG 1 PER DAY, END DATE 12/29/2008
     Dates: start: 20030901

REACTIONS (3)
  - DIABETES MELLITUS [None]
  - MEMORY IMPAIRMENT [None]
  - WEIGHT INCREASED [None]
